FAERS Safety Report 15959122 (Version 1)
Quarter: 2019Q1

REPORT INFORMATION
  Report Type: Spontaneous
  Country: US (occurrence: US)
  Receive Date: 20190214
  Receipt Date: 20190214
  Transmission Date: 20190417
  Serious: No
  Sender: FDA-Public Use
  Company Number: US-JNJFOC-20190128082

PATIENT
  Age: 30 Year
  Sex: Female
  Weight: 65.32 kg

DRUGS (5)
  1. NEOSPORIN [Concomitant]
     Active Substance: BACITRACIN ZINC\NEOMYCIN SULFATE\POLYMYXIN B SULFATE
     Indication: DRY SKIN
     Route: 065
     Dates: start: 201901
  2. ZYRTEC [Suspect]
     Active Substance: CETIRIZINE HYDROCHLORIDE
     Route: 065
  3. BENADRYL ALLERGY [Suspect]
     Active Substance: DIPHENHYDRAMINE HYDROCHLORIDE
     Indication: SWELLING FACE
     Route: 065
     Dates: start: 201901
  4. NEUTROGENA HYDRO BOOST EXFOLIATING CLEANSER [Concomitant]
     Indication: SKIN EXFOLIATION
     Dosage: NICKLE SIZED DABS THREE TIMES ONCE SUNDAY NIGHT, AND THEN TWICE ON MONDAY
     Route: 061
     Dates: start: 20190113, end: 20190114
  5. ZYRTEC [Suspect]
     Active Substance: CETIRIZINE HYDROCHLORIDE
     Indication: SWELLING FACE
     Route: 065
     Dates: start: 201901

REACTIONS (2)
  - Product use in unapproved indication [Unknown]
  - Therapeutic response unexpected [Unknown]

NARRATIVE: CASE EVENT DATE: 201901
